FAERS Safety Report 21107111 (Version 1)
Quarter: 2022Q3

REPORT INFORMATION
  Report Type: Spontaneous
  Country: US (occurrence: None)
  Receive Date: 20220720
  Receipt Date: 20220720
  Transmission Date: 20221027
  Serious: Yes (Hospitalization)
  Sender: FDA-Public Use
  Company Number: None

PATIENT
  Age: 54 Year
  Sex: Female

DRUGS (2)
  1. OCTREOTIDE ACETATE [Suspect]
     Active Substance: OCTREOTIDE ACETATE
     Indication: Hyponatraemia
     Dosage: OTHER STRENGTH : 50MCG/ML;?OTHER QUANTITY : 50 MCG.ML;?FREQUENCY : EVERY 8 HOURS;?
     Route: 058
     Dates: start: 20220622
  2. OCTREOTIDE ACETATE [Concomitant]
     Active Substance: OCTREOTIDE ACETATE

REACTIONS (1)
  - Therapy change [None]

NARRATIVE: CASE EVENT DATE: 20220720
